FAERS Safety Report 9153234 (Version 1)
Quarter: 2013Q1

REPORT INFORMATION
  Report Type: Spontaneous
  Country: US (occurrence: US)
  Receive Date: 20130311
  Receipt Date: 20130311
  Transmission Date: 20140127
  Serious: No
  Sender: FDA-Public Use
  Company Number: US-BIOGENIDEC-2013BI020782

PATIENT
  Sex: Female

DRUGS (4)
  1. TYSABRI [Suspect]
     Indication: MULTIPLE SCLEROSIS
     Route: 042
     Dates: start: 20110401, end: 201211
  2. SALT TABLET [Concomitant]
     Indication: INAPPROPRIATE ANTIDIURETIC HORMONE SECRETION
  3. LYRICA [Concomitant]
     Indication: DYSPHAGIA
     Dates: start: 2010
  4. DILAUDID [Concomitant]
     Indication: OROPHARYNGEAL PAIN
     Dates: start: 2010

REACTIONS (3)
  - Laryngitis [Recovered/Resolved]
  - Bronchitis [Recovered/Resolved]
  - Trigeminal neuralgia [Not Recovered/Not Resolved]
